FAERS Safety Report 8782057 (Version 1)
Quarter: 2012Q4

REPORT INFORMATION
  Report Type: 
  Country: US (occurrence: US)
  Receive Date: 20120913
  Receipt Date: 20120913
  Transmission Date: 20130627
  Serious: Yes (Hospitalization)
  Sender: FDA-Public Use
  Company Number: US-US-EMD SERONO, INC.-7159569

PATIENT
  Age: 56 Year
  Sex: Female

DRUGS (5)
  1. REBIF [Suspect]
     Indication: MULTIPLE SCLEROSIS
     Route: 058
     Dates: start: 2009, end: 20120625
  2. UNSPECIFIED BLOOD PRESSURE PILL [Concomitant]
     Indication: HYPERTENSION
  3. DIOVAN [Concomitant]
     Indication: HYPERTENSION
  4. LASIX [Concomitant]
     Indication: FLUID RETENTION
  5. LIPITOR [Concomitant]
     Indication: HYPERTENSION

REACTIONS (2)
  - Escherichia infection [Recovered/Resolved]
  - Hearing impaired [Not Recovered/Not Resolved]
